FAERS Safety Report 19713577 (Version 2)
Quarter: 2021Q3

REPORT INFORMATION
  Report Type: Report from Study
  Country: US (occurrence: US)
  Receive Date: 20210818
  Receipt Date: 20210928
  Transmission Date: 20211014
  Serious: Yes (Hospitalization)
  Sender: FDA-Public Use
  Company Number: US-BRISTOL-MYERS SQUIBB COMPANY-BMS-2021-080929

PATIENT
  Age: 49 Year
  Sex: Female
  Weight: 98.87 kg

DRUGS (7)
  1. ETOPOSIDE. [Suspect]
     Active Substance: ETOPOSIDE
     Indication: B-CELL LYMPHOMA STAGE II
     Dosage: 50 MILLIGRAM/SQ. METER/DAY
     Route: 065
     Dates: start: 20210603, end: 20210605
  2. NIVOLUMAB [Suspect]
     Active Substance: NIVOLUMAB
     Indication: B-CELL LYMPHOMA STAGE II
     Dosage: 3 MG/KG, Q21 DAYS (480 MG, 28 DAYS)
     Route: 042
     Dates: start: 20210629, end: 20210629
  3. VINCRISTINE SULFATE. [Suspect]
     Active Substance: VINCRISTINE SULFATE
     Indication: B-CELL LYMPHOMA STAGE II
     Dosage: 0.4 MILLIGRAM/SQ.METER/DAY X 96 HOURS EACH 21 DAY CYCLE
     Route: 042
     Dates: start: 20210603, end: 20210605
  4. RITUXIMAB. [Suspect]
     Active Substance: RITUXIMAB
     Indication: B-CELL LYMPHOMA STAGE II
     Dosage: 375 MILLIGRAM/SQ. METER, Q3WK
     Route: 042
     Dates: start: 20210603, end: 20210603
  5. CYCLOPHOSPHAMIDE. [Suspect]
     Active Substance: CYCLOPHOSPHAMIDE
     Indication: B-CELL LYMPHOMA STAGE II
     Dosage: 750 MILLIGRAM/SQ. METER/DAY (FOLLOWING 96 HOUR INFUSION EACH 21 DAY CYCLE)
     Route: 040
     Dates: start: 20210603, end: 20210605
  6. DOXORUBICIN HYDROCHLORIDE. [Suspect]
     Active Substance: DOXORUBICIN HYDROCHLORIDE
     Indication: B-CELL LYMPHOMA STAGE II
     Dosage: 10 MILLIGRAM/SQ.METER/DAY
     Route: 065
     Dates: start: 20210603, end: 20210605
  7. PREDNISONE. [Suspect]
     Active Substance: PREDNISONE
     Indication: B-CELL LYMPHOMA STAGE II
     Dosage: 60 MILLIGRAM/SQ. METER/DAY, ON DAYS 1?5 EACH 21 DAY CYCLE
     Route: 048
     Dates: start: 20210603, end: 20210605

REACTIONS (6)
  - Chest discomfort [Recovering/Resolving]
  - Tenderness [Unknown]
  - Vaginal discharge [Unknown]
  - Haematuria [Recovered/Resolved]
  - Diarrhoea [Recovered/Resolved]
  - Troponin increased [Recovering/Resolving]

NARRATIVE: CASE EVENT DATE: 20210807
